FAERS Safety Report 6902731-8 (Version None)
Quarter: 2010Q3

REPORT INFORMATION
  Report Type: 
  Country: None (occurrence: None)
  Receive Date: 20100803
  Receipt Date: 20080708
  Transmission Date: 20110219
  Serious: No
  Sender: FDA-Public Use
  Company Number: US-PFIZER INC-2008039703

PATIENT
  Sex: Male
  Weight: 124.5 kg

DRUGS (2)
  1. LYRICA [Suspect]
     Indication: DIABETIC NEUROPATHY
     Dates: start: 20080501
  2. AVANDAMET [Concomitant]
     Indication: DIABETES MELLITUS

REACTIONS (6)
  - ACTIVITIES OF DAILY LIVING IMPAIRED [None]
  - CONSTIPATION [None]
  - FEELING ABNORMAL [None]
  - FEELING DRUNK [None]
  - MUSCULAR WEAKNESS [None]
  - MYALGIA [None]
